FAERS Safety Report 16377076 (Version 1)
Quarter: 2019Q3

REPORT INFORMATION
  Report Type: Spontaneous
  Country: US (occurrence: US)
  Receive Date: 20190530
  Receipt Date: 20190530
  Transmission Date: 20191004
  Serious: No
  Sender: FDA-Public Use
  Company Number: None

PATIENT
  Age: 54 Year
  Sex: Female
  Weight: 55.35 kg

DRUGS (4)
  1. IBUPROFEN 600MG Q.D. [Concomitant]
  2. VITAMIN D 5,000 Q.D. [Concomitant]
  3. LEVOTHYROXINE 75MCG [Suspect]
     Active Substance: LEVOTHYROXINE
     Indication: HYPOTHYROIDISM
     Dosage: ?          OTHER STRENGTH:0.075 MG;QUANTITY:1 TABLET(S);?
     Route: 048
     Dates: start: 20190228, end: 20190328
  4. ASPIRIN 81 MG Q.D. [Concomitant]

REACTIONS (3)
  - Blood thyroid stimulating hormone increased [None]
  - Product quality issue [None]
  - Palpitations [None]

NARRATIVE: CASE EVENT DATE: 20190315
